FAERS Safety Report 7499576-X (Version None)
Quarter: 2011Q2

REPORT INFORMATION
  Report Type: 
  Country: None (occurrence: None)
  Receive Date: 20110516
  Receipt Date: 20110429
  Transmission Date: 20111010
  Serious: Yes (Hospitalization)
  Sender: FDA-Public Use
  Company Number: UTC-006791

PATIENT
  Age: 37 Year
  Sex: Female

DRUGS (1)
  1. REMODULIN [Suspect]
     Indication: PULMONARY HYPERTENSION
     Dosage: INTRAVENOUS
     Route: 042

REACTIONS (5)
  - LEFT VENTRICULAR DYSFUNCTION [None]
  - BLOOD PRESSURE DIASTOLIC DECREASED [None]
  - CARDIAC MURMUR [None]
  - RIGHT VENTRICULAR HYPERTROPHY [None]
  - PRESYNCOPE [None]
